FAERS Safety Report 6559665-0 (Version None)
Quarter: 2010Q1

REPORT INFORMATION
  Report Type: 
  Country: None (occurrence: None)
  Receive Date: 20100129
  Receipt Date: 20090911
  Transmission Date: 20100710
  Serious: No
  Sender: FDA-Public Use
  Company Number: US-ABBOTT-09P-163-0596545-00

PATIENT
  Sex: Male
  Weight: 86.26 kg

DRUGS (2)
  1. HUMIRA [Suspect]
     Indication: CROHN'S DISEASE
     Dates: end: 20080801
  2. HUMIRA [Suspect]
     Dates: start: 20090101, end: 20090911

REACTIONS (5)
  - ARTHRALGIA [None]
  - EYE PRURITUS [None]
  - MYALGIA [None]
  - NEUROPATHY PERIPHERAL [None]
  - VISION BLURRED [None]
